FAERS Safety Report 9979923 (Version 1)
Quarter: 2014Q1

REPORT INFORMATION
  Report Type: Report from Study
  Country: US (occurrence: US)
  Receive Date: 20140307
  Receipt Date: 20140307
  Transmission Date: 20141002
  Serious: No
  Sender: FDA-Public Use
  Company Number: US-ABBVIE-13P-163-1175485-00

PATIENT
  Age: 64 Year
  Sex: Female

DRUGS (5)
  1. HUMIRA [Suspect]
     Indication: PSORIASIS
     Dates: start: 20131023
  2. BENICAR [Concomitant]
     Indication: BLOOD PRESSURE
  3. BENICAR [Concomitant]
     Indication: FLUID RETENTION
  4. DETROL [Concomitant]
     Indication: BLADDER DISORDER
     Dosage: BLUE ONE
  5. SIMVASTATIN [Concomitant]
     Indication: BLOOD CHOLESTEROL INCREASED
     Dosage: EVENING

REACTIONS (1)
  - Nausea [Recovered/Resolved]
